FAERS Safety Report 10759954 (Version 2)
Quarter: 2015Q1

REPORT INFORMATION
  Report Type: Spontaneous
  Country: AT (occurrence: AT)
  Receive Date: 20150203
  Receipt Date: 20150208
  Transmission Date: 20150721
  Serious: Yes (Other)
  Sender: FDA-Public Use
  Company Number: AT-EMD SERONO-8006717

PATIENT
  Age: 44 Year
  Sex: Female
  Weight: 60 kg

DRUGS (1)
  1. REBIF [Suspect]
     Active Substance: INTERFERON BETA-1A
     Indication: MULTIPLE SCLEROSIS
     Dosage: 44 (UNITS UNSPECIFIED)
     Dates: start: 2007

REACTIONS (2)
  - Abscess [Recovered/Resolved with Sequelae]
  - Panniculitis [Recovered/Resolved with Sequelae]

NARRATIVE: CASE EVENT DATE: 20140731
